FAERS Safety Report 9058881 (Version 1)
Quarter: 2013Q1

REPORT INFORMATION
  Report Type: Report from Study
  Country: US (occurrence: US)
  Receive Date: 20130211
  Receipt Date: 20130211
  Transmission Date: 20140127
  Serious: No
  Sender: FDA-Public Use
  Company Number: US-VERTEX PHARMACEUTICALS INC.-2013-001730

PATIENT
  Sex: Female

DRUGS (6)
  1. VX-950 (TELAPREVIR) [Suspect]
     Indication: HEPATITIS C
     Dosage: 750 MG, TID
     Route: 048
     Dates: start: 2012
  2. PEGASYS [Suspect]
     Indication: HEPATITIS C
     Dosage: 180 ?G, QW
     Route: 058
     Dates: start: 2012
  3. RIBAVIRIN [Suspect]
     Indication: HEPATITIS C
     Dosage: 600 MG, BID
     Route: 048
     Dates: start: 2012
  4. PREMARIN [Concomitant]
     Dosage: 0.625 MG, MWF
     Route: 048
  5. ATENOLOL [Concomitant]
     Dosage: 50 MG, QD
     Route: 048
  6. ENALAPRIL [Concomitant]
     Dosage: 1 DF, QD
     Route: 048

REACTIONS (5)
  - Analgesic drug level increased [Unknown]
  - Nephrolithiasis [Unknown]
  - Depressed mood [Unknown]
  - Pain [Unknown]
  - Fatigue [Unknown]
